FAERS Safety Report 24190030 (Version 3)
Quarter: 2024Q3

REPORT INFORMATION
  Report Type: Spontaneous
  Country: CH (occurrence: CH)
  Receive Date: 20240808
  Receipt Date: 20240822
  Transmission Date: 20241016
  Serious: Yes (Death)
  Sender: PFIZER
  Company Number: CH-PFIZER INC-PV202400103181

PATIENT
  Age: 87 Year
  Sex: Female

DRUGS (2)
  1. ANIDULAFUNGIN [Suspect]
     Active Substance: ANIDULAFUNGIN
     Indication: Systemic candida
     Dosage: 200 MG, SINGLE - ON THE FIRST DAY
     Route: 042
     Dates: start: 20240710
  2. ANIDULAFUNGIN [Suspect]
     Active Substance: ANIDULAFUNGIN
     Dosage: 100 MG, 1X/DAY
     Route: 042
     Dates: start: 20240711

REACTIONS (1)
  - Death [Fatal]

NARRATIVE: CASE EVENT DATE: 20240718
